FAERS Safety Report 10740146 (Version 1)
Quarter: 2015Q1

REPORT INFORMATION
  Report Type: Spontaneous
  Country: GB (occurrence: GB)
  Receive Date: 20150127
  Receipt Date: 20150127
  Transmission Date: 20150721
  Serious: Yes (Life-Threatening)
  Sender: FDA-Public Use
  Company Number: GB-DRREDDYS-GER/UKI/15/0045588

PATIENT
  Age: 73 Year
  Sex: Male
  Weight: 72 kg

DRUGS (11)
  1. OMEPRAZOLE. [Concomitant]
     Active Substance: OMEPRAZOLE
     Indication: PRODUCT USED FOR UNKNOWN INDICATION
     Dates: start: 20141217
  2. LANSOPRAZOLE. [Concomitant]
     Active Substance: LANSOPRAZOLE
     Indication: PRODUCT USED FOR UNKNOWN INDICATION
     Dates: start: 20141027, end: 20141124
  3. ATORVASTATIN [Suspect]
     Active Substance: ATORVASTATIN
     Indication: ANGINA PECTORIS
  4. COCODAMOL [Concomitant]
     Active Substance: ACETAMINOPHEN\CODEINE PHOSPHATE
     Dates: start: 20141215, end: 20141227
  5. INTAL [Concomitant]
     Active Substance: CROMOLYN SODIUM
     Indication: PRODUCT USED FOR UNKNOWN INDICATION
     Dates: start: 20141027, end: 20141124
  6. AMLODIPINE [Concomitant]
     Active Substance: AMLODIPINE BESYLATE
     Indication: PRODUCT USED FOR UNKNOWN INDICATION
     Dates: start: 20141217
  7. COCODAMOL [Concomitant]
     Active Substance: ACETAMINOPHEN\CODEINE PHOSPHATE
     Indication: PRODUCT USED FOR UNKNOWN INDICATION
     Dates: start: 20141027, end: 20141108
  8. GLICLAZIDE [Concomitant]
     Active Substance: GLICLAZIDE
     Indication: PRODUCT USED FOR UNKNOWN INDICATION
     Dates: start: 20141027, end: 20141124
  9. BISOPROLOL [Suspect]
     Active Substance: BISOPROLOL
     Indication: ANGINA PECTORIS
  10. GLICLAZIDE [Concomitant]
     Active Substance: GLICLAZIDE
     Dates: start: 20141215, end: 20150112
  11. ASPIRIN. [Concomitant]
     Active Substance: ASPIRIN
     Indication: PRODUCT USED FOR UNKNOWN INDICATION
     Dates: start: 20141217

REACTIONS (6)
  - Mouth swelling [Recovered/Resolved]
  - Pharyngeal oedema [Recovered/Resolved]
  - Pyrexia [Recovered/Resolved]
  - Paraesthesia oral [Recovered/Resolved]
  - Respiratory tract oedema [Recovered/Resolved]
  - Myalgia [Recovered/Resolved]

NARRATIVE: CASE EVENT DATE: 20150101
